FAERS Safety Report 8653564 (Version 3)
Quarter: 2012Q4

REPORT INFORMATION
  Report Type: 
  Country: US (occurrence: US)
  Receive Date: 20120709
  Receipt Date: 20121003
  Transmission Date: 20130627
  Serious: Yes (Hospitalization)
  Sender: FDA-Public Use
  Company Number: US-BIOGENIDEC-2012BI023239

PATIENT
  Age: 52 None
  Sex: Female

DRUGS (1)
  1. AVONEX [Suspect]
     Indication: MULTIPLE SCLEROSIS
     Route: 030
     Dates: start: 20000220

REACTIONS (5)
  - Uterine leiomyoma [Recovered/Resolved]
  - Spondylolisthesis [Not Recovered/Not Resolved]
  - Uterine dilation and curettage [Recovered/Resolved]
  - Knee operation [Recovered/Resolved]
  - Multiple sclerosis relapse [Recovered/Resolved]
